APPROVED DRUG PRODUCT: PACLITAXEL
Active Ingredient: PACLITAXEL
Strength: 6MG/ML
Dosage Form/Route: INJECTABLE;INJECTION
Application: A076131 | Product #001 | TE Code: AP
Applicant: HOSPIRA INC
Approved: May 8, 2002 | RLD: No | RS: Yes | Type: RX